FAERS Safety Report 7167261-X (Version None)
Quarter: 2010Q4

REPORT INFORMATION
  Report Type: 
  Country: None (occurrence: None)
  Receive Date: 20101213
  Receipt Date: 20101213
  Transmission Date: 20110411
  Serious: Yes (Hospitalization)
  Sender: FDA-Public Use
  Company Number: None

PATIENT
  Age: 43 Year
  Sex: Male
  Weight: 68 kg

DRUGS (6)
  1. RITUXIMAB, 375 MG/M2, GENENTECH [Suspect]
     Indication: NON-HODGKIN'S LYMPHOMA
     Dosage: 670 MG, 50 MG/HR, IV
     Route: 042
     Dates: start: 20101207
  2. PERCOCET [Concomitant]
  3. METOPROLOL TARTRATE [Concomitant]
  4. SERTRALINE HYDROCHLORIDE [Concomitant]
  5. CHANTIX [Concomitant]
  6. VESICARE [Concomitant]

REACTIONS (2)
  - HYDRONEPHROSIS [None]
  - MEDICAL DEVICE CHANGE [None]
